FAERS Safety Report 16366265 (Version 1)
Quarter: 2019Q3

REPORT INFORMATION
  Report Type: Spontaneous
  Country: US (occurrence: US)
  Receive Date: 20190528
  Receipt Date: 20190528
  Transmission Date: 20191004
  Serious: Yes (Other)
  Sender: FDA-Public Use
  Company Number: None

PATIENT
  Age: 16 Year
  Sex: Female
  Weight: 67 kg

DRUGS (8)
  1. LABETALOL (IV) [Concomitant]
     Dates: start: 20190512, end: 20190520
  2. ALBUTEROL/IPRATROPIUM (NEBULIZED) [Concomitant]
     Dates: start: 20190512, end: 20190520
  3. DOCUSATE [Concomitant]
     Active Substance: DOCUSATE
     Dates: start: 20190513, end: 20190520
  4. 3% SODIUM CHLORIDE [Concomitant]
     Active Substance: SODIUM CHLORIDE
     Dates: start: 20190513, end: 20190518
  5. LEVETIRACETAM (IV) [Concomitant]
     Dates: start: 20190512, end: 20190516
  6. ACETAMINOPHEN (PO) [Concomitant]
     Dates: start: 20190512, end: 20190521
  7. SENNA [Concomitant]
     Active Substance: SENNA LEAF\SENNOSIDES\SENNOSIDES A AND B
     Dates: start: 20190513, end: 20190520
  8. CLEVIDIPINE [Suspect]
     Active Substance: CLEVIDIPINE
     Indication: HYPERTENSION
     Dosage: ?          OTHER FREQUENCY:32 MG/HR INFUSION;?
     Route: 041

REACTIONS (3)
  - Haemolysis [None]
  - Blood cholesterol increased [None]
  - Blood triglycerides increased [None]

NARRATIVE: CASE EVENT DATE: 20190514
